FAERS Safety Report 5500411-7 (Version None)
Quarter: 2007Q4

REPORT INFORMATION
  Report Type: 
  Country: None (occurrence: None)
  Receive Date: 20071018
  Receipt Date: 20070502
  Transmission Date: 20080405
  Serious: Yes (Other)
  Sender: FDA-Public Use
  Company Number: 2007036456

PATIENT
  Age: 57 Year
  Sex: Female

DRUGS (1)
  1. NEURONTIN [Suspect]
     Indication: BACK PAIN

REACTIONS (4)
  - AMNESIA [None]
  - DEPRESSION [None]
  - HYPERTENSION [None]
  - KIDNEY INFECTION [None]
